FAERS Safety Report 10674655 (Version 1)
Quarter: 2014Q4

REPORT INFORMATION
  Report Type: Spontaneous
  Country: DK (occurrence: DK)
  Receive Date: 20141224
  Receipt Date: 20141224
  Transmission Date: 20150529
  Serious: Yes (Life-Threatening)
  Sender: FDA-Public Use
  Company Number: PHHY2014DK166652

PATIENT
  Age: 16 Year
  Sex: Female
  Weight: 46 kg

DRUGS (6)
  1. FLUOXETINE [Suspect]
     Active Substance: FLUOXETINE\FLUOXETINE HYDROCHLORIDE
     Dosage: 40 MG, UNK
     Route: 048
     Dates: start: 20140903
  2. FLUOXETINE [Suspect]
     Active Substance: FLUOXETINE\FLUOXETINE HYDROCHLORIDE
     Indication: DEPRESSION
     Dosage: DOSE UNKNOWN, STRENGTH 20 MG
     Route: 048
     Dates: start: 20140823
  3. IMIGRAN [Suspect]
     Active Substance: SUMATRIPTAN SUCCINATE
     Indication: SUICIDE ATTEMPT
     Dosage: DOSE UNKNOWN
     Route: 045
     Dates: start: 20141027, end: 20141027
  4. MELATONIN [Suspect]
     Active Substance: MELATONIN
     Indication: SUICIDE ATTEMPT
     Dosage: DOSE UNKNOWN
     Route: 048
     Dates: start: 20141027, end: 20141027
  5. IBUMETIN [Suspect]
     Active Substance: IBUPROFEN
     Indication: SUICIDE ATTEMPT
     Dosage: DOSE UNKNOWN
     Route: 048
     Dates: start: 20141027, end: 20141027
  6. PARACETAMOL [Suspect]
     Active Substance: ACETAMINOPHEN
     Indication: SUICIDE ATTEMPT
     Dosage: DOSE UNKNOWN
     Route: 048
     Dates: start: 20141027, end: 20141027

REACTIONS (1)
  - Suicide attempt [Recovered/Resolved]

NARRATIVE: CASE EVENT DATE: 20141027
